FAERS Safety Report 6529447-4 (Version None)
Quarter: 2010Q1

REPORT INFORMATION
  Report Type: 
  Country: None (occurrence: None)
  Receive Date: 20100107
  Receipt Date: 20091228
  Transmission Date: 20100710
  Serious: Yes (Hospitalization)
  Sender: FDA-Public Use
  Company Number: BR-AMGEN-US383940

PATIENT
  Sex: Female

DRUGS (1)
  1. ENBREL [Suspect]
     Indication: DRUG USE FOR UNKNOWN INDICATION
     Dosage: UNSPECIFIED
     Route: 058

REACTIONS (7)
  - CHILLS [None]
  - COUGH [None]
  - DIARRHOEA [None]
  - HYPERTHERMIA [None]
  - PRURITUS [None]
  - UNEVALUABLE EVENT [None]
  - VOMITING [None]
